FAERS Safety Report 4788954-5 (Version None)
Quarter: 2005Q4

REPORT INFORMATION
  Report Type: 
  Country: None (occurrence: None)
  Receive Date: 20051004
  Receipt Date: 20050926
  Transmission Date: 20060501
  Serious: Yes (Hospitalization, Other)
  Sender: FDA-Public Use
  Company Number: 2005113325

PATIENT
  Sex: Female
  Weight: 58.9676 kg

DRUGS (20)
  1. GABAPENTIN [Suspect]
     Indication: NEURALGIA
     Dosage: 4400 MG (4 IN 1 D),
     Dates: start: 20020101
  2. GABAPENTIN [Suspect]
     Indication: RESTLESS LEGS SYNDROME
     Dosage: 4400 MG (4 IN 1 D),
     Dates: start: 20020101
  3. NEURONTIN [Suspect]
     Indication: NEURALGIA
  4. NEURONTIN [Suspect]
     Indication: RESTLESS LEGS SYNDROME
  5. LIDOCAINE HCL INJ [Suspect]
     Indication: ILL-DEFINED DISORDER
     Dates: start: 20050301
  6. PROVIGIL [Concomitant]
  7. FOSAMAX [Concomitant]
  8. MIACALCIN [Concomitant]
  9. CALCIUM WITH VITAMIN D (CALCIUM PHOSPHATE, CALCIUM SODIUM LACTATE, ERG [Concomitant]
  10. PANCRELIPASE (PANCRELIPASE) [Concomitant]
  11. NEXIUM [Concomitant]
  12. MORPHINE [Concomitant]
  13. TYLENOL [Concomitant]
  14. XANAX [Concomitant]
  15. PROMETRIUM [Concomitant]
  16. ADVAIR DISKUS 100/50 [Concomitant]
  17. ALBUTEROL [Concomitant]
  18. SINGULAIR ^MERCK^ (MONTELUKAST SODIUM) [Concomitant]
  19. TESTOSTERONE [Concomitant]
  20. PROGESTERONE [Concomitant]

REACTIONS (26)
  - ANOREXIA [None]
  - ANXIETY [None]
  - CHRONIC OBSTRUCTIVE PULMONARY DISEASE [None]
  - CONDITION AGGRAVATED [None]
  - CONVULSION [None]
  - DEATH OF PARENT [None]
  - DIARRHOEA [None]
  - DYSPHEMIA [None]
  - ECONOMIC PROBLEM [None]
  - EPISTAXIS [None]
  - FALL [None]
  - FATIGUE [None]
  - FOOT FRACTURE [None]
  - HEAD INJURY [None]
  - HORMONE LEVEL ABNORMAL [None]
  - IATROGENIC INJURY [None]
  - INCORRECT DOSE ADMINISTERED [None]
  - LUNG INJURY [None]
  - MALAISE [None]
  - NAUSEA [None]
  - PAIN [None]
  - PANIC ATTACK [None]
  - PROCEDURAL COMPLICATION [None]
  - RIB FRACTURE [None]
  - VOMITING [None]
  - WEIGHT DECREASED [None]
